FAERS Safety Report 4424806-8 (Version None)
Quarter: 2004Q3

REPORT INFORMATION
  Report Type: 
  Country: None (occurrence: None)
  Receive Date: 20040809
  Receipt Date: 20040723
  Transmission Date: 20050211
  Serious: Yes (Hospitalization)
  Sender: FDA-Public Use
  Company Number: 03P-062-0236307-00

PATIENT
  Age: 66 Year
  Sex: Female
  Weight: 57.5 kg

DRUGS (12)
  1. HUMIRA [Suspect]
     Indication: RHEUMATOID ARTHRITIS
     Dosage: 1 IN 2 WK, SUBCUTANEOUS
     Route: 058
     Dates: start: 20030411, end: 20031010
  2. PHENPROCOUMON [Concomitant]
  3. MISOPROSTOL [Concomitant]
  4. REOFECOXIB [Concomitant]
  5. PREDNISOLONE [Concomitant]
  6. METHOTREXATE SODIUM [Concomitant]
  7. LEFLUNOMIDE [Concomitant]
  8. ETANERCEPT [Concomitant]
  9. SULFASALAZINE [Concomitant]
  10. GOLD [Concomitant]
  11. TRAMADOL HYDROCHLORIDE [Concomitant]
  12. MISOPROSTOL [Concomitant]

REACTIONS (12)
  - APHTHOUS STOMATITIS [None]
  - C-REACTIVE PROTEIN INCREASED [None]
  - DEEP VEIN THROMBOSIS [None]
  - HEART RATE INCREASED [None]
  - HYPERCOAGULATION [None]
  - IMMUNOSUPPRESSION [None]
  - MUSCLE ATROPHY [None]
  - PANCYTOPENIA [None]
  - PNEUMONIA [None]
  - PULMONARY EMBOLISM [None]
  - SEPSIS [None]
  - VIRAL INFECTION [None]
